FAERS Safety Report 11871484 (Version 9)
Quarter: 2017Q3

REPORT INFORMATION
  Report Type: Spontaneous
  Country: CA (occurrence: CA)
  Receive Date: 20151228
  Receipt Date: 20170711
  Transmission Date: 20171127
  Serious: Yes (Other)
  Sender: FDA-Public Use
  Company Number: CA-PFIZER INC-2015138517

PATIENT
  Age: 65 Year
  Sex: Male

DRUGS (8)
  1. XELJANZ [Suspect]
     Active Substance: TOFACITINIB CITRATE
     Dosage: 5 MG, 1X/DAY
     Route: 048
     Dates: start: 201601, end: 20160218
  2. METHOTREXATE SODIUM. [Suspect]
     Active Substance: METHOTREXATE SODIUM
     Indication: RHEUMATOID ARTHRITIS
     Dosage: 20 MG, WEEKLY
     Route: 058
     Dates: end: 201506
  3. XELJANZ [Suspect]
     Active Substance: TOFACITINIB CITRATE
     Dosage: 5 MG, 2X/DAY
     Route: 048
     Dates: start: 20160219, end: 20160614
  4. XELJANZ [Suspect]
     Active Substance: TOFACITINIB CITRATE
     Indication: RHEUMATOID ARTHRITIS
     Dosage: 5 MG, DAILY
     Route: 048
     Dates: start: 20150116, end: 20150310
  5. XELJANZ [Suspect]
     Active Substance: TOFACITINIB CITRATE
     Dosage: 5 MG, 2X/DAY
     Route: 048
     Dates: start: 20150311, end: 20150915
  6. XELJANZ [Suspect]
     Active Substance: TOFACITINIB CITRATE
     Dosage: 5 MG, 1X/DAY
     Route: 048
     Dates: start: 20170320, end: 20170621
  7. PREDNISONE. [Concomitant]
     Active Substance: PREDNISONE
     Dosage: 30 MG, UNK
     Dates: end: 201703
  8. PREDNISONE. [Concomitant]
     Active Substance: PREDNISONE
     Dosage: 12.5 MG, UNK
     Dates: start: 2017

REACTIONS (19)
  - Arthropathy [Recovering/Resolving]
  - Rheumatoid arthritis [Not Recovered/Not Resolved]
  - Precancerous skin lesion [Not Recovered/Not Resolved]
  - Bronchitis [Not Recovered/Not Resolved]
  - Liver function test increased [Recovered/Resolved]
  - Hepatic fibrosis [Recovering/Resolving]
  - Productive cough [Recovering/Resolving]
  - Condition aggravated [Not Recovered/Not Resolved]
  - Laryngitis [Recovering/Resolving]
  - Gait disturbance [Recovering/Resolving]
  - Blister [Not Recovered/Not Resolved]
  - Lipoma [Unknown]
  - Hepatic enzyme increased [Unknown]
  - Nasopharyngitis [Unknown]
  - Pyrexia [Recovering/Resolving]
  - Musculoskeletal chest pain [Unknown]
  - Drug ineffective [Unknown]
  - Arthralgia [Not Recovered/Not Resolved]
  - Condition aggravated [Recovering/Resolving]

NARRATIVE: CASE EVENT DATE: 20150915
